FAERS Safety Report 6440816 (Version 7)
Quarter: 2018Q1

REPORT INFORMATION
  Report Type: Report from Study
  Country: DE (occurrence: DE)
  Receive Date: 20071012
  Receipt Date: 20180115
  Transmission Date: 20180509
  Serious: Yes (Hospitalization, Other)
  Sender: FDA-Public Use
  Company Number: DE-JNJFOC-20071001222

PATIENT
  Age: 40 Year
  Sex: Female
  Weight: 91.9 kg

DRUGS (3)
  1. INFLIXIMAB [Suspect]
     Active Substance: INFLIXIMAB
     Indication: PSORIASIS
     Route: 042
     Dates: start: 20070710
  2. FEMRANETTE [Concomitant]
     Indication: CONTRACEPTION
     Route: 048
     Dates: start: 2002
  3. INFLIXIMAB [Suspect]
     Active Substance: INFLIXIMAB
     Indication: PSORIASIS
     Route: 042
     Dates: start: 20070727, end: 20070821

REACTIONS (4)
  - Bacterial infection [Unknown]
  - Arthritis [Not Recovered/Not Resolved]
  - Psoriatic arthropathy [Unknown]
  - Viral infection [Unknown]

NARRATIVE: CASE EVENT DATE: 20070807
